FAERS Safety Report 14953024 (Version 1)
Quarter: 2018Q2

REPORT INFORMATION
  Report Type: Spontaneous
  Country: CH (occurrence: CH)
  Receive Date: 20180530
  Receipt Date: 20180530
  Transmission Date: 20180711
  Serious: Yes (Death, Hospitalization)
  Sender: FDA-Public Use
  Company Number: CH-ELI_LILLY_AND_COMPANY-CH201805011089

PATIENT
  Age: 48 Year
  Sex: Female
  Weight: 48.4 kg

DRUGS (8)
  1. DEPO-PROVERA [Suspect]
     Active Substance: MEDROXYPROGESTERONE ACETATE
     Indication: PRODUCT USED FOR UNKNOWN INDICATION
     Dosage: UNK UNK, UNKNOWN
     Route: 065
     Dates: start: 20161221, end: 20161221
  2. CYMBALTA [Concomitant]
     Active Substance: DULOXETINE HYDROCHLORIDE
     Dosage: 30 MG, DAILY
     Route: 048
  3. ZYPREXA [Suspect]
     Active Substance: OLANZAPINE
     Indication: PRODUCT USED FOR UNKNOWN INDICATION
     Dosage: 4 DF, DAILY
     Route: 048
     Dates: start: 2016
  4. XANAX [Concomitant]
     Active Substance: ALPRAZOLAM
     Dosage: .5 MG, BID
     Route: 048
  5. XANAX [Concomitant]
     Active Substance: ALPRAZOLAM
     Dosage: .25 MG, DAILY
     Route: 048
  6. SERETIDE [Concomitant]
     Active Substance: FLUTICASONE PROPIONATE\SALMETEROL XINAFOATE
     Dosage: 1 DF, BID
     Route: 055
  7. CYMBALTA [Concomitant]
     Active Substance: DULOXETINE HYDROCHLORIDE
     Indication: PRODUCT USED FOR UNKNOWN INDICATION
     Dosage: 60 MG, DAILY
     Route: 048
  8. SPIRIVA [Concomitant]
     Active Substance: TIOTROPIUM BROMIDE MONOHYDRATE
     Dosage: .018 MG, UNK
     Route: 055

REACTIONS (8)
  - Night sweats [Unknown]
  - Oedema [Unknown]
  - Oxygen consumption increased [Unknown]
  - Lymphangioleiomyomatosis [Fatal]
  - Hypoxia [Fatal]
  - Dyspnoea [Unknown]
  - Hypercapnia [Fatal]
  - Palpitations [Unknown]

NARRATIVE: CASE EVENT DATE: 20161224
